FAERS Safety Report 6881778-4 (Version None)
Quarter: 2010Q3

REPORT INFORMATION
  Report Type: 
  Country: None (occurrence: None)
  Receive Date: 20100729
  Receipt Date: 20100720
  Transmission Date: 20110219
  Serious: Yes (Life-Threatening, Hospitalization)
  Sender: FDA-Public Use
  Company Number: JP-PFIZER INC-2010083139

PATIENT
  Age: 28 Year
  Sex: Male

DRUGS (2)
  1. ZITHROMAC SR [Suspect]
     Indication: CHLAMYDIAL INFECTION
     Dosage: 2 G, SINGLE
     Route: 048
     Dates: start: 20100611, end: 20100611
  2. ZITHROMAC SR [Suspect]
     Indication: GONORRHOEA

REACTIONS (1)
  - ANAPHYLACTIC SHOCK [None]
